FAERS Safety Report 24987964 (Version 4)
Quarter: 2025Q3

REPORT INFORMATION
  Report Type: Report from Study
  Country: CA (occurrence: CA)
  Receive Date: 20250219
  Receipt Date: 20250908
  Transmission Date: 20251020
  Serious: Yes (Hospitalization, Other)
  Sender: Alvotech
  Company Number: CA-JAMP PHARMA CORPORATION-2023-JAM-CA-02098

PATIENT
  Age: 74 Year
  Sex: Female

DRUGS (3)
  1. SIMLANDI [Suspect]
     Active Substance: ADALIMUMAB-RYVK
     Indication: Rheumatoid arthritis
     Route: 058
  2. SIMLANDI [Suspect]
     Active Substance: ADALIMUMAB-RYVK
     Indication: Rheumatoid arthritis
     Route: 058
     Dates: start: 20230802, end: 20231011
  3. SIMLANDI [Suspect]
     Active Substance: ADALIMUMAB-RYVK
     Indication: Rheumatoid arthritis
     Dosage: 40 MG, EVERY 2 WEEKS
     Route: 058

REACTIONS (5)
  - Cerebrovascular accident [Unknown]
  - Illness [Recovered/Resolved]
  - Drug ineffective [Unknown]
  - Insurance issue [Unknown]
  - Inappropriate schedule of product administration [Unknown]

NARRATIVE: CASE EVENT DATE: 20230101
